FAERS Safety Report 23897601 (Version 2)
Quarter: 2024Q2

REPORT INFORMATION
  Report Type: Report from Study
  Country: IT (occurrence: IT)
  Receive Date: 20240524
  Receipt Date: 20240605
  Transmission Date: 20240715
  Serious: Yes (Life-Threatening, Hospitalization, Other)
  Sender: FDA-Public Use
  Company Number: IT-BAXTER-2024BAX018612

PATIENT
  Age: 72 Year
  Sex: Male
  Weight: 50 kg

DRUGS (40)
  1. CYCLOPHOSPHAMIDE [Suspect]
     Active Substance: CYCLOPHOSPHAMIDE
     Indication: Diffuse large B-cell lymphoma
     Dosage: 1237.5 MG, EVERY 3 WEEKS, ONGOING
     Route: 042
     Dates: start: 20240404
  2. EPCORITAMAB [Suspect]
     Active Substance: EPCORITAMAB
     Indication: Diffuse large B-cell lymphoma
     Dosage: 0.16 MG PRIMING DOSE; C1, D1, TOTAL;
     Route: 058
     Dates: start: 20240404, end: 20240404
  3. EPCORITAMAB [Suspect]
     Active Substance: EPCORITAMAB
     Dosage: 0.8 MG INTERMEDIATE DOSE; C1, D8, TOTAL
     Route: 058
     Dates: start: 20240411, end: 20240411
  4. EPCORITAMAB [Suspect]
     Active Substance: EPCORITAMAB
     Dosage: 48 MG FULL DOSE; C1, D15, TOTAL
     Route: 058
     Dates: start: 20240423, end: 20240423
  5. EPCORITAMAB [Suspect]
     Active Substance: EPCORITAMAB
     Dosage: 48 MG, EVERY 1 WEEKS, ONGOING
     Route: 058
     Dates: start: 20240430
  6. PREDNISONE [Suspect]
     Active Substance: PREDNISONE
     Indication: Diffuse large B-cell lymphoma
     Dosage: 100 MG DAILY C1-6, DAY 1-5, EVERY 1 DAYS
     Route: 048
     Dates: start: 20240404, end: 20240408
  7. PREDNISONE [Suspect]
     Active Substance: PREDNISONE
     Dosage: 400 MG CYCLE 2 DAY 1, TOTAL
     Route: 048
     Dates: start: 20240423, end: 20240423
  8. PREDNISONE [Suspect]
     Active Substance: PREDNISONE
     Dosage: 20 MG CYCLE 2, EVERY 1 DAYS
     Route: 048
     Dates: start: 20240424, end: 20240427
  9. RITUXIMAB [Suspect]
     Active Substance: RITUXIMAB
     Indication: Diffuse large B-cell lymphoma
     Dosage: 618.8 MG, EVERY 3 WEEKS, ONGOING
     Route: 042
     Dates: start: 20240404
  10. VINCRISTINE [Suspect]
     Active Substance: VINCRISTINE
     Indication: Diffuse large B-cell lymphoma
     Dosage: 2 MG, EVERY 3 WEEKS, ONGOING
     Route: 042
     Dates: start: 20240404
  11. DOXORUBICIN [Suspect]
     Active Substance: DOXORUBICIN
     Indication: Diffuse large B-cell lymphoma
     Dosage: 82.5 MG, EVERY 3 WEEKS, ONGOING
     Route: 042
     Dates: start: 20240404
  12. ACYCLOVIR [Concomitant]
     Active Substance: ACYCLOVIR
     Indication: Antiviral prophylaxis
     Dosage: 400 MG, 2/DAYS
     Route: 065
     Dates: start: 20240405
  13. ALLOPURINOL [Concomitant]
     Active Substance: ALLOPURINOL
     Indication: Prophylaxis
     Dosage: 300 MG, EVERY 1 DAYS
     Route: 065
     Dates: start: 20240319
  14. ENOXAPARIN SODIUM [Concomitant]
     Active Substance: ENOXAPARIN SODIUM
     Indication: Thrombosis prophylaxis
     Dosage: 4000 U, EVERY 1 DAYS
     Route: 065
     Dates: start: 20240325
  15. BECLOMETHASONE DIPROPIONATE [Concomitant]
     Active Substance: BECLOMETHASONE DIPROPIONATE
     Indication: Dyspnoea
     Dosage: 2 ML, 2/DAYS
     Route: 065
     Dates: start: 20240403, end: 20240411
  16. Paracodina [Concomitant]
     Indication: Antitussive therapy
     Dosage: 10.25 MG 20DROPS FOUR TIMES A DAY, EVERY 4 HOURS
     Route: 065
     Dates: start: 20240327
  17. LEVOFLOXACIN [Concomitant]
     Active Substance: LEVOFLOXACIN
     Indication: Antibiotic prophylaxis
     Dosage: 500 MG, EVERY 1 DAYS
     Route: 065
     Dates: start: 20240325, end: 20240331
  18. FLUIMUCIL [Concomitant]
     Active Substance: ACETYLCYSTEINE
     Indication: Cough
     Dosage: 600 MG EVERY AFTERNOON, EVERY 1 DAYS
     Route: 065
     Dates: start: 20240325, end: 20240331
  19. DEXAMETHASONE [Concomitant]
     Active Substance: DEXAMETHASONE
     Indication: Prophylaxis
     Dosage: 15 MG, EVERY 24 HOURS
     Route: 065
     Dates: start: 20240411, end: 20240414
  20. DEXAMETHASONE [Concomitant]
     Active Substance: DEXAMETHASONE
     Indication: Product used for unknown indication
     Dosage: 10 ML, EVERY 1 DAYS
     Route: 065
     Dates: start: 20240503, end: 20240503
  21. FOLIC ACID [Concomitant]
     Active Substance: FOLIC ACID
     Indication: Product used for unknown indication
     Dosage: 5 MG, EVERY 3 WEEKS
     Route: 065
     Dates: start: 20240403
  22. AMITRIPTYLINE HYDROCHLORIDE [Concomitant]
     Active Substance: AMITRIPTYLINE HYDROCHLORIDE
     Indication: Insomnia
     Dosage: 3 DROPS 40 MG/L, AS NECESSARY
     Route: 065
  23. BACTRIM [Concomitant]
     Active Substance: SULFAMETHOXAZOLE\TRIMETHOPRIM
     Indication: Product used for unknown indication
     Dosage: 960 MG, 3/WEEKS
     Route: 065
     Dates: start: 20240403
  24. DEXAMETHASONE [Concomitant]
     Active Substance: DEXAMETHASONE
     Indication: Premedication
     Dosage: 15 MG, EVERY 1 DAYS
     Route: 065
     Dates: start: 20240412, end: 20240414
  25. DEXAMETHASONE [Concomitant]
     Active Substance: DEXAMETHASONE
     Dosage: 15 MG, TOTAL
     Route: 065
     Dates: start: 20240430, end: 20240430
  26. MOVICOL [Concomitant]
     Active Substance: POLYETHYLENE GLYCOL 3350\POTASSIUM CHLORIDE\SODIUM BICARBONATE\SODIUM CHLORIDE
     Indication: Constipation
     Dosage: 13.8 G 1 TO 3 SACHETS PER DAY, 3/DAYS
     Route: 065
     Dates: start: 20240408
  27. MAALOX ANTACID [Concomitant]
     Active Substance: ALUMINUM HYDROXIDE\DIMETHICONE\MAGNESIUM HYDROXIDE
     Indication: Abdominal pain upper
     Dosage: 250 MG OCCASIONAL, 1 TABLESPOON IF STOMACH ACHE
     Route: 065
     Dates: start: 20240405
  28. Pursennid [Concomitant]
     Indication: Constipation
     Dosage: 12 MG OCCASIONAL, 2CP DAY IF CONSTIPATION
     Route: 065
     Dates: start: 20240408
  29. PREDNISONE [Concomitant]
     Active Substance: PREDNISONE
     Indication: Product used for unknown indication
     Dosage: 100 MG, 2/DAYS
     Route: 065
     Dates: start: 20240424, end: 20240427
  30. HYDROCORTISONE SODIUM SUCCINATE [Concomitant]
     Active Substance: HYDROCORTISONE SODIUM SUCCINATE
     Indication: Premedication
     Dosage: 400 MG, TOTAL
     Route: 065
     Dates: start: 20240404, end: 20240404
  31. PALONOSETRON HYDROCHLORIDE [Concomitant]
     Active Substance: PALONOSETRON HYDROCHLORIDE
     Indication: Antiemetic supportive care
     Dosage: 250 MG, TOTAL
     Route: 065
     Dates: start: 20240423, end: 20240423
  32. PANTOPRAZOLE SODIUM [Concomitant]
     Active Substance: PANTOPRAZOLE SODIUM
     Indication: Prophylaxis against gastrointestinal ulcer
     Dosage: 40 MG, TOTAL
     Route: 065
     Dates: start: 20240423, end: 20240423
  33. PANTOPRAZOLE SODIUM [Concomitant]
     Active Substance: PANTOPRAZOLE SODIUM
     Indication: Gastrooesophageal reflux disease
     Dosage: 20 MG, 2/DAYS
     Route: 065
  34. ACETAMINOPHEN [Concomitant]
     Active Substance: ACETAMINOPHEN
     Indication: Premedication
     Dosage: 1000 MG, TOTAL
     Route: 065
     Dates: start: 20240430, end: 20240430
  35. TRIMETON [Concomitant]
     Active Substance: CHLORPHENIRAMINE MALEATE
     Indication: Premedication
     Dosage: 10 MG, 2/DAYS
     Route: 065
     Dates: start: 20240423
  36. TOCILIZUMAB [Concomitant]
     Active Substance: TOCILIZUMAB
     Indication: Prophylaxis
     Dosage: 450 MG, TOTAL
     Route: 065
     Dates: start: 20240417
  37. FILGRASTIM [Concomitant]
     Active Substance: FILGRASTIM
     Indication: Prophylaxis
     Dosage: 30 MMU/ML, EVERY 12 HOURS
     Route: 065
     Dates: start: 20240408, end: 20240410
  38. LACTULOSE [Concomitant]
     Active Substance: LACTULOSE
     Indication: Prophylaxis
     Dosage: 66.7 G, AS NECESSARY
     Route: 065
     Dates: start: 20240403
  39. METOCLOPRAMIDE HYDROCHLORIDE [Concomitant]
     Active Substance: METOCLOPRAMIDE HYDROCHLORIDE
     Indication: Prophylaxis of nausea and vomiting
     Dosage: 10 MG, AS NECESSARY
     Route: 065
     Dates: start: 20240404
  40. ZOFRAN [Concomitant]
     Active Substance: ONDANSETRON HYDROCHLORIDE
     Indication: Prophylaxis of nausea and vomiting
     Dosage: 8 MG, AS NECESSARY
     Route: 065
     Dates: start: 20240404

REACTIONS (7)
  - Anaemia [Recovered/Resolved]
  - Neutropenia [Recovered/Resolved]
  - Thrombocytopenia [Recovered/Resolved]
  - Thrombocytopenia [Recovered/Resolved]
  - Neutropenia [Not Recovered/Not Resolved]
  - Pseudomonas infection [Not Recovered/Not Resolved]
  - Septic shock [Not Recovered/Not Resolved]

NARRATIVE: CASE EVENT DATE: 20240413
